FAERS Safety Report 4525831-9 (Version None)
Quarter: 2004Q4

REPORT INFORMATION
  Report Type: 
  Country: None (occurrence: None)
  Receive Date: 20041213
  Receipt Date: 20041208
  Transmission Date: 20050328
  Serious: Yes (Life-Threatening)
  Sender: FDA-Public Use
  Company Number: DK-MERCK-0412DNK00009

PATIENT
  Age: 73 Year
  Sex: Male
  Weight: 70 kg

DRUGS (1)
  1. FOSAMAX [Suspect]
     Route: 048
     Dates: end: 20041001

REACTIONS (2)
  - ASTHENIA [None]
  - ASTHMA [None]
